FAERS Safety Report 7573703-8 (Version None)
Quarter: 2011Q2

REPORT INFORMATION
  Report Type: 
  Country: None (occurrence: None)
  Receive Date: 20110627
  Receipt Date: 20110617
  Transmission Date: 20111010
  Serious: Yes (Hospitalization)
  Sender: FDA-Public Use
  Company Number: FR-ROCHE-784389

PATIENT
  Sex: Female

DRUGS (8)
  1. CLONAZEPAM [Suspect]
     Route: 048
     Dates: end: 20110223
  2. TRAMADOL HCL [Concomitant]
  3. KAYEXALATE [Concomitant]
  4. VENLAFAXINE [Suspect]
     Route: 048
     Dates: start: 20110125, end: 20110223
  5. MIRTAZAPINE [Suspect]
     Route: 048
     Dates: start: 20110218, end: 20110223
  6. ACETAMINOPHEN [Concomitant]
  7. DEBRIDAT [Concomitant]
  8. OXAZEPAM [Concomitant]

REACTIONS (2)
  - LEUKOPENIA [None]
  - HAEMOLYTIC ANAEMIA [None]
